FAERS Safety Report 15148187 (Version 4)
Quarter: 2018Q3

REPORT INFORMATION
  Report Type: Spontaneous
  Country: JP (occurrence: JP)
  Receive Date: 20180716
  Receipt Date: 20180815
  Transmission Date: 20181010
  Serious: Yes (Other)
  Sender: FDA-Public Use
  Company Number: JP-ORION CORPORATION ORION PHARMA-ENTC2018-0069

PATIENT
  Sex: Female

DRUGS (4)
  1. STALEVO [Suspect]
     Active Substance: CARBIDOPA\ENTACAPONE\LEVODOPA
     Route: 048
     Dates: start: 20180707
  2. SEDIEL [Concomitant]
     Active Substance: TANDOSPIRONE
     Route: 065
  3. STALEVO [Suspect]
     Active Substance: CARBIDOPA\ENTACAPONE\LEVODOPA
     Indication: PARKINSON^S DISEASE
     Route: 048
     Dates: end: 20180706
  4. FP [Concomitant]
     Active Substance: SELEGILINE HYDROCHLORIDE
     Route: 065

REACTIONS (4)
  - Drug ineffective [Unknown]
  - Gastrointestinal disorder [Recovered/Resolved]
  - Parkinson^s disease [Not Recovered/Not Resolved]
  - Nausea [Unknown]

NARRATIVE: CASE EVENT DATE: 201802
